FAERS Safety Report 10059137 (Version 2)
Quarter: 2014Q2

REPORT INFORMATION
  Report Type: Report from Study
  Country: CZ (occurrence: CZ)
  Receive Date: 20140404
  Receipt Date: 20140404
  Transmission Date: 20141212
  Serious: Yes (Death, Hospitalization)
  Sender: FDA-Public Use
  Company Number: PHHO2012CZ001062

PATIENT
  Sex: 0

DRUGS (8)
  1. BLINDED ALISKIREN [Suspect]
     Dosage: CODE NOT BROKEN
     Route: 048
     Dates: start: 20110607, end: 20130314
  2. BLINDED ENALAPRIL [Suspect]
     Dosage: CODE NOT BROKEN
     Route: 048
     Dates: start: 20110607, end: 20130314
  3. BLINDED NO TREATMENT RECEIVED [Suspect]
     Dosage: CODE NOT BROKEN
     Route: 048
     Dates: start: 20110607, end: 20130314
  4. DIGOXIN [Concomitant]
     Indication: ATRIAL FIBRILLATION
     Dosage: 0.2 MG, UNK
     Route: 048
     Dates: start: 20110730
  5. WARFARIN [Concomitant]
     Indication: ATRIAL FIBRILLATION
     Dosage: 5 MG, UNK
     Route: 048
     Dates: start: 20110730, end: 20120502
  6. CARVEDILOL [Concomitant]
     Indication: CARDIAC FAILURE
     Dosage: 1 DF, BID (2X D, 6.25)
     Dates: start: 20101111
  7. FURON [Concomitant]
     Indication: CARDIAC FAILURE
     Dosage: 40 MG, UNK
     Dates: start: 20101111
  8. CORYOL [Concomitant]
     Indication: CARDIAC FAILURE
     Dosage: 6.251

REACTIONS (1)
  - Cardiac failure [Fatal]
